FAERS Safety Report 5842994-3 (Version None)
Quarter: 2008Q3

REPORT INFORMATION
  Report Type: 
  Country: None (occurrence: None)
  Receive Date: 20080813
  Receipt Date: 20080730
  Transmission Date: 20090109
  Serious: Yes (Hospitalization)
  Sender: FDA-Public Use
  Company Number: FR-ELI_LILLY_AND_COMPANY-FR200807006076

PATIENT
  Age: 71 Year
  Sex: Female

DRUGS (2)
  1. FORTEO [Suspect]
     Indication: OSTEOPOROSIS
     Dosage: 20 UG, UNKNOWN
     Route: 065
     Dates: start: 20070604
  2. AUGMENTIN '125' [Concomitant]
     Dosage: 3 MG, DAILY (1/D), SACHETS
     Route: 065

REACTIONS (3)
  - LIMB INJURY [None]
  - OEDEMA PERIPHERAL [None]
  - PYREXIA [None]
